FAERS Safety Report 9291971 (Version 2)
Quarter: 2013Q2

REPORT INFORMATION
  Report Type: Spontaneous
  Country: US (occurrence: US)
  Receive Date: 20130516
  Receipt Date: 20130606
  Transmission Date: 20140414
  Serious: Yes (Other)
  Sender: FDA-Public Use
  Company Number: US-PFIZER INC-2013146657

PATIENT
  Sex: 0

DRUGS (6)
  1. EPIPEN [Suspect]
     Indication: HYPERSENSITIVITY
     Dosage: UNK
  2. EPIPEN [Suspect]
     Indication: PRURITUS
  3. EPIPEN [Suspect]
     Indication: URTICARIA
  4. BENADRYL [Suspect]
     Indication: HYPERSENSITIVITY
     Dosage: UNK
  5. BENADRYL [Suspect]
     Indication: PRURITUS
  6. BENADRYL [Suspect]
     Indication: URTICARIA

REACTIONS (1)
  - Drug ineffective [Unknown]
